FAERS Safety Report 5146384-0 (Version None)
Quarter: 2006Q4

REPORT INFORMATION
  Report Type: 
  Country: None (occurrence: None)
  Receive Date: 20061108
  Receipt Date: 20061106
  Transmission Date: 20070319
  Serious: Yes (Hospitalization)
  Sender: FDA-Public Use
  Company Number: ZA-ROXANE LABORATORIES, INC-2006-DE-05842GD

PATIENT
  Sex: Male

DRUGS (1)
  1. PREDNISONE TAB [Suspect]
     Indication: CHRONIC OBSTRUCTIVE PULMONARY DISEASE
     Route: 048

REACTIONS (3)
  - MYELITIS TRANSVERSE [None]
  - PROSTATE CANCER [None]
  - REBOUND EFFECT [None]
